FAERS Safety Report 11097954 (Version 1)
Quarter: 2015Q2

REPORT INFORMATION
  Report Type: Spontaneous
  Country: US (occurrence: US)
  Receive Date: 20150507
  Receipt Date: 20150507
  Transmission Date: 20150821
  Serious: Yes (Hospitalization)
  Sender: FDA-Public Use
  Company Number: PHEH2015US008632

PATIENT
  Age: 34 Year
  Sex: Male
  Weight: 158.73 kg

DRUGS (1)
  1. COSENTYX [Suspect]
     Active Substance: SECUKINUMAB
     Indication: PSORIASIS
     Dosage: 300 MG, QW
     Route: 058
     Dates: start: 20150413, end: 20150425

REACTIONS (2)
  - Acne [Unknown]
  - Infected bites [Unknown]

NARRATIVE: CASE EVENT DATE: 20150501
